FAERS Safety Report 23784254 (Version 1)
Quarter: 2024Q2

REPORT INFORMATION
  Report Type: Spontaneous
  Country: DE (occurrence: DE)
  Receive Date: 20240425
  Receipt Date: 20240425
  Transmission Date: 20240716
  Serious: Yes (Hospitalization)
  Sender: FDA-Public Use
  Company Number: DE-SANDOZ-SDZ2024DE042795

PATIENT
  Age: 74 Year
  Sex: Female

DRUGS (1)
  1. RISPERIDONE [Suspect]
     Active Substance: RISPERIDONE
     Indication: Product used for unknown indication
     Dosage: 0.25 MG
     Route: 065
     Dates: start: 202211

REACTIONS (5)
  - Somatic symptom disorder [Unknown]
  - Mental disorder [Unknown]
  - Sensory disturbance [Unknown]
  - Muscle spasms [Unknown]
  - Withdrawal syndrome [Unknown]
